FAERS Safety Report 20321579 (Version 3)
Quarter: 2022Q1

REPORT INFORMATION
  Report Type: Report from Study
  Country: US (occurrence: US)
  Receive Date: 20220111
  Receipt Date: 20220224
  Transmission Date: 20220423
  Serious: Yes (Hospitalization)
  Sender: FDA-Public Use
  Company Number: US-ALNYLAM PHARMACEUTICALS, INC.-ALN-2022-000034

PATIENT

DRUGS (2)
  1. ONPATTRO [Suspect]
     Active Substance: PATISIRAN SODIUM
     Indication: Product used for unknown indication
     Dosage: UNK, Q3W
     Route: 042
     Dates: start: 20211124
  2. ONPATTRO [Suspect]
     Active Substance: PATISIRAN SODIUM
     Dosage: UNK
     Route: 065

REACTIONS (2)
  - Light chain disease [Unknown]
  - Off label use [Unknown]
